FAERS Safety Report 6762890-7 (Version None)
Quarter: 2010Q2

REPORT INFORMATION
  Report Type: 
  Country: None (occurrence: None)
  Receive Date: 20100609
  Receipt Date: 20100527
  Transmission Date: 20101027
  Serious: Yes (Other)
  Sender: FDA-Public Use
  Company Number: US-PFIZER INC-2010067485

PATIENT
  Sex: Male

DRUGS (17)
  1. DETROL [Suspect]
     Dosage: 4 MG, PER DAY
     Route: 048
  2. HYDROCHLOROTHIAZIDE [Suspect]
     Indication: DRUG USE FOR UNKNOWN INDICATION
     Dosage: 12.5 MG, PER DAY
     Route: 048
  3. CLOPIDOGREL BISULFATE [Suspect]
     Indication: DRUG USE FOR UNKNOWN INDICATION
     Dosage: 75 MG, PER DAY
     Route: 048
  4. SIMVASTATIN [Suspect]
     Dosage: 80 MG, AT NIGHT
     Route: 048
  5. ZOFRAN [Suspect]
     Dosage: 8 MG, CYCLIC
     Route: 042
  6. CARBOPLATIN [Suspect]
     Indication: CHEMOTHERAPY
     Dosage: UNK, CYCLIC
     Route: 042
     Dates: start: 20100414
  7. FOSINOPRIL SODIUM [Suspect]
     Dosage: 20 MG, 2X/DAY
     Route: 048
  8. PROMETHAZINE HCL [Suspect]
     Indication: NAUSEA
     Dosage: 25 MG, AS NEEDED
     Route: 048
  9. PACLITAXEL [Suspect]
     Indication: CHEMOTHERAPY
     Dosage: 200 MG/M2, CYCLIC
     Route: 042
     Dates: start: 20100414
  10. ASPIRIN [Suspect]
     Indication: DRUG USE FOR UNKNOWN INDICATION
     Dosage: 81 MG, PER DAY
     Route: 048
  11. COREG [Suspect]
     Indication: DRUG USE FOR UNKNOWN INDICATION
     Dosage: 25 MG, 2X/DAY
     Route: 048
  12. ZANTAC [Suspect]
     Indication: PROPHYLAXIS
     Dosage: 50 MG, CYCLIC
     Route: 042
  13. DEXAMETHASONE [Suspect]
     Indication: PROPHYLAXIS OF NAUSEA AND VOMITING
     Dosage: 20 MG, CYCLIC
     Route: 042
  14. DIPHENHYDRAMINE [Suspect]
     Indication: PROPHYLAXIS
     Dosage: 50 MG, CYCLIC
     Route: 042
  15. MEGESTROL ACETATE [Suspect]
     Indication: APPETITE DISORDER
     Dosage: 40 MG/ML, 4X/DAY
     Route: 048
  16. VITAMIN D [Suspect]
     Indication: PROPHYLAXIS OF NAUSEA AND VOMITING
     Dosage: 50000 UNITS, CYCLIC
     Route: 065
  17. OMEPRAZOLE [Suspect]
     Indication: DRUG USE FOR UNKNOWN INDICATION
     Dosage: 20 UNK, 2X/DAY
     Route: 048

REACTIONS (25)
  - ABASIA [None]
  - ASTHENIA [None]
  - ATELECTASIS [None]
  - BLOOD CHLORIDE DECREASED [None]
  - BLOOD GLUCOSE INCREASED [None]
  - BLOOD UREA INCREASED [None]
  - DEHYDRATION [None]
  - DIARRHOEA [None]
  - EATING DISORDER [None]
  - FAILURE TO THRIVE [None]
  - HAEMATOCRIT [None]
  - HAEMOGLOBIN DECREASED [None]
  - HYPOCALCAEMIA [None]
  - HYPOMAGNESAEMIA [None]
  - HYPONATRAEMIA [None]
  - LISTLESS [None]
  - LUNG ADENOCARCINOMA [None]
  - MONOCYTE COUNT DECREASED [None]
  - NEUTROPENIA [None]
  - NEUTROPHIL COUNT DECREASED [None]
  - PNEUMONIA [None]
  - PROTHROMBIN TIME PROLONGED [None]
  - RED BLOOD CELL COUNT DECREASED [None]
  - TACHYCARDIA [None]
  - WHITE BLOOD CELL COUNT DECREASED [None]
